FAERS Safety Report 4968179-0 (Version None)
Quarter: 2006Q2

REPORT INFORMATION
  Report Type: 
  Country: None (occurrence: None)
  Receive Date: 20060410
  Receipt Date: 20060330
  Transmission Date: 20061013
  Serious: Yes (Other)
  Sender: FDA-Public Use
  Company Number: US-JNJFOC-20060400263

PATIENT
  Sex: Male
  Weight: 108.86 kg

DRUGS (7)
  1. REMICADE [Suspect]
     Route: 042
  2. REMICADE [Suspect]
     Indication: DRUG USE FOR UNKNOWN INDICATION
     Dosage: 2 INFUSIONS ON UNKNOWN DATES
     Route: 042
  3. METHOTREXATE [Concomitant]
  4. INSULIN [Concomitant]
  5. XANAX [Concomitant]
  6. DAYPRO [Concomitant]
  7. ZOLOFT [Concomitant]

REACTIONS (2)
  - CATARACT [None]
  - PHOTOPHOBIA [None]
